FAERS Safety Report 4972415-4 (Version None)
Quarter: 2006Q2

REPORT INFORMATION
  Report Type: 
  Country: None (occurrence: None)
  Receive Date: 20060413
  Receipt Date: 20050706
  Transmission Date: 20061013
  Serious: Yes (Death, Hospitalization, Other)
  Sender: FDA-Public Use
  Company Number: US-MERCK-0507USA00990

PATIENT
  Age: 81 Year
  Sex: Female
  Weight: 34 kg

DRUGS (10)
  1. VIOXX [Suspect]
     Indication: ARTHRITIS
     Route: 048
     Dates: start: 19991201, end: 20010501
  2. BEXTRA [Concomitant]
     Route: 065
  3. CELEBREX [Concomitant]
     Route: 065
  4. EVISTA [Concomitant]
     Route: 065
  5. SINEMET [Concomitant]
     Route: 065
  6. [THERAPY UNSPECIFIED] [Concomitant]
     Route: 065
  7. [THERAPY UNSPECIFIED] [Concomitant]
     Route: 065
  8. ZOCOR [Concomitant]
     Route: 065
  9. NORVASC [Concomitant]
     Route: 065
  10. ESTRING [Concomitant]
     Route: 065

REACTIONS (16)
  - ABDOMINAL PAIN [None]
  - ARTHRALGIA [None]
  - ARTHROPATHY [None]
  - BACK PAIN [None]
  - CARDIAC ARREST [None]
  - CEREBROVASCULAR ACCIDENT [None]
  - CERUMEN IMPACTION [None]
  - CHRONIC OBSTRUCTIVE PULMONARY DISEASE [None]
  - CORONARY ARTERY DISEASE [None]
  - DECREASED APPETITE [None]
  - FAECES HARD [None]
  - GASTRITIS [None]
  - OTITIS EXTERNA [None]
  - URINARY TRACT INFECTION [None]
  - VASCULAR DEMENTIA [None]
  - WEIGHT DECREASED [None]
